FAERS Safety Report 14082945 (Version 2)
Quarter: 2018Q1

REPORT INFORMATION
  Report Type: Spontaneous
  Country: FR (occurrence: FR)
  Receive Date: 20171012
  Receipt Date: 20180122
  Transmission Date: 20180508
  Serious: Yes (Other)
  Sender: FDA-Public Use
  Company Number: FR-BRISTOL-MYERS SQUIBB COMPANY-BMS-2017-090569

PATIENT
  Age: 61 Year
  Sex: Male
  Weight: 60 kg

DRUGS (1)
  1. OPDIVO [Suspect]
     Active Substance: NIVOLUMAB
     Indication: OESOPHAGEAL CARCINOMA
     Dosage: 207 MG, QCYCLE
     Route: 041
     Dates: start: 20170424

REACTIONS (6)
  - Visual acuity reduced [Not Recovered/Not Resolved]
  - Choroiditis [Not Recovered/Not Resolved]
  - Product use in unapproved indication [Unknown]
  - Detachment of retinal pigment epithelium [Not Recovered/Not Resolved]
  - Chorioretinitis [Not Recovered/Not Resolved]
  - Vogt-Koyanagi-Harada syndrome [Not Recovered/Not Resolved]

NARRATIVE: CASE EVENT DATE: 201709
